FAERS Safety Report 7584144-1 (Version None)
Quarter: 2011Q2

REPORT INFORMATION
  Report Type: 
  Country: None (occurrence: None)
  Receive Date: 20110630
  Receipt Date: 20110624
  Transmission Date: 20111010
  Serious: Yes (Death, Hospitalization)
  Sender: FDA-Public Use
  Company Number: US-PFIZER INC-2011088653

PATIENT
  Sex: Female

DRUGS (7)
  1. GENOTROPIN [Suspect]
     Indication: SMALL FOR DATES BABY
  2. SINGULAIR [Concomitant]
  3. ZITHROMAX [Concomitant]
  4. PREVACID [Concomitant]
  5. NASONEX [Concomitant]
  6. GENOTROPIN [Suspect]
     Indication: DWARFISM
     Dosage: 0.9 MG, 1X/DAY
     Route: 058
     Dates: start: 20030606, end: 20110228
  7. SUPPRELIN [Concomitant]

REACTIONS (2)
  - PULMONARY HYPERTENSION [None]
  - RESPIRATORY DISTRESS [None]
